FAERS Safety Report 5734599-X (Version None)
Quarter: 2008Q2

REPORT INFORMATION
  Report Type: 
  Country: None (occurrence: None)
  Receive Date: 20080508
  Receipt Date: 20080430
  Transmission Date: 20081010
  Serious: Yes (Other)
  Sender: FDA-Public Use
  Company Number: 430073K07USA

PATIENT
  Age: 56 Year
  Sex: Female
  Weight: 62.1428 kg

DRUGS (4)
  1. NOVANTRONE [Suspect]
     Indication: MULTIPLE SCLEROSIS
     Dosage: 20 MG, ONCE; 17 MG, 1 IN 3 MONTHS
     Dates: start: 20060807, end: 20060807
  2. NOVANTRONE [Suspect]
     Indication: MULTIPLE SCLEROSIS
     Dosage: 20 MG, ONCE; 17 MG, 1 IN 3 MONTHS
     Dates: start: 20060101, end: 20070510
  3. REBIF [Suspect]
     Indication: MULTIPLE SCLEROSIS
     Dosage: 44 MCG, 3 IN 1 WEEKS, SUBCUTANEOUS
     Route: 058
     Dates: start: 20050101
  4. BETAPACE [Concomitant]

REACTIONS (3)
  - CHEST PAIN [None]
  - HEART RATE INCREASED [None]
  - TRICUSPID VALVE INCOMPETENCE [None]
